FAERS Safety Report 11773598 (Version 1)
Quarter: 2015Q4

REPORT INFORMATION
  Report Type: Report from Study
  Country: US (occurrence: US)
  Receive Date: 20151124
  Receipt Date: 20151124
  Transmission Date: 20160304
  Serious: Yes (Other)
  Sender: FDA-Public Use
  Company Number: PHHY2014US014545

PATIENT
  Age: 59 Year
  Sex: Male

DRUGS (6)
  1. LUCENTIS [Suspect]
     Active Substance: RANIBIZUMAB
     Indication: RETINAL VEIN OCCLUSION
     Dosage: 0.5 MG, (0.5 MG ONCE IN 4 WEEK)
     Route: 031
     Dates: start: 201312
  2. LUCENTIS [Suspect]
     Active Substance: RANIBIZUMAB
     Dosage: 0.5 MG, (ONCE IN 4 WEEK)
     Route: 031
     Dates: start: 20140124, end: 20140124
  3. NAPROXEN SODIUM. [Suspect]
     Active Substance: NAPROXEN SODIUM
     Indication: SINUSITIS
     Dosage: GIVEN 10 YEAR AGO
     Route: 065
  4. LUCENTIS [Suspect]
     Active Substance: RANIBIZUMAB
     Dosage: 0.5 MG, QMO
     Route: 065
  5. LUCENTIS [Suspect]
     Active Substance: RANIBIZUMAB
     Indication: RETINAL TEAR
     Dosage: 0.5 MG, (ONCE IN 4 WEEK)
     Route: 031
     Dates: start: 201310
  6. LUCENTIS [Suspect]
     Active Substance: RANIBIZUMAB
     Indication: MACULAR OEDEMA
     Dosage: 0.5 MG, (0.5 MG ONCE IN 4 WEEK)
     Route: 031
     Dates: start: 201311

REACTIONS (15)
  - Eye pain [Not Recovered/Not Resolved]
  - Eye disorder [Unknown]
  - Blindness [Unknown]
  - Eye swelling [Not Recovered/Not Resolved]
  - Eyelid oedema [Not Recovered/Not Resolved]
  - Eye haemorrhage [Unknown]
  - Haemorrhage [Unknown]
  - Drug hypersensitivity [Unknown]
  - Vitreous floaters [Unknown]
  - Visual impairment [Not Recovered/Not Resolved]
  - Visual impairment [Unknown]
  - Pain [Unknown]
  - Visual field defect [Unknown]
  - Rash erythematous [Unknown]
  - Photopsia [Recovered/Resolved]

NARRATIVE: CASE EVENT DATE: 201401
